FAERS Safety Report 13873690 (Version 1)
Quarter: 2017Q3

REPORT INFORMATION
  Report Type: Spontaneous
  Country: US (occurrence: US)
  Receive Date: 20170816
  Receipt Date: 20170816
  Transmission Date: 20171127
  Serious: Yes (Hospitalization, Other)
  Sender: FDA-Public Use
  Company Number: US-ALLERGAN-1734898US

PATIENT
  Age: 67 Year
  Sex: Female

DRUGS (1)
  1. ESCITALOPRAM OXALATE - BP [Suspect]
     Active Substance: ESCITALOPRAM OXALATE
     Indication: PRODUCT USED FOR UNKNOWN INDICATION
     Route: 065

REACTIONS (10)
  - Paranoia [Unknown]
  - Aggression [Unknown]
  - Memory impairment [Recovering/Resolving]
  - Hallucination [Recovered/Resolved]
  - Myoclonus [Recovered/Resolved]
  - Small cell lung cancer [Unknown]
  - Encephalitis [Unknown]
  - Disturbance in attention [Unknown]
  - Respiratory distress [Unknown]
  - Drug ineffective [Unknown]
